FAERS Safety Report 7743692-1 (Version None)
Quarter: 2011Q3

REPORT INFORMATION
  Report Type: 
  Country: None (occurrence: None)
  Receive Date: 20110912
  Receipt Date: 20110831
  Transmission Date: 20111222
  Serious: Yes (Other)
  Sender: FDA-Public Use
  Company Number: US-ELI_LILLY_AND_COMPANY-US201109001372

PATIENT
  Sex: Female

DRUGS (3)
  1. HUMULIN R [Suspect]
     Indication: DIABETES MELLITUS
     Dosage: 14 U, EACH MORNING
  2. ANTIHYPERTENSIVES [Concomitant]
     Dosage: UNK
  3. HUMULIN R [Suspect]
     Dosage: 9 U, OTHER

REACTIONS (11)
  - SYSTEMIC LUPUS ERYTHEMATOSUS [None]
  - DIABETIC NEUROPATHY [None]
  - DIABETES MELLITUS INADEQUATE CONTROL [None]
  - RENAL DISORDER [None]
  - INTENTIONAL DRUG MISUSE [None]
  - SKIN DISCOLOURATION [None]
  - RENAL IMPAIRMENT [None]
  - BLOOD GLUCOSE DECREASED [None]
  - BLOOD GLUCOSE INCREASED [None]
  - INTERSTITIAL LUNG DISEASE [None]
  - PAIN [None]
